FAERS Safety Report 9697584 (Version 1)
Quarter: 2013Q4

REPORT INFORMATION
  Report Type: Spontaneous
  Country: FR (occurrence: FR)
  Receive Date: 20131120
  Receipt Date: 20131120
  Transmission Date: 20140711
  Serious: Yes (Hospitalization)
  Sender: FDA-Public Use
  Company Number: FR-009507513-1311FRA004497

PATIENT
  Age: 21 Year
  Sex: Female

DRUGS (1)
  1. VARNOLINE [Suspect]
     Indication: CONTRACEPTION
     Dosage: UNK
     Route: 048
     Dates: start: 2006, end: 2010

REACTIONS (1)
  - Retinal artery occlusion [Recovered/Resolved with Sequelae]
